FAERS Safety Report 7767960-2 (Version None)
Quarter: 2011Q3

REPORT INFORMATION
  Report Type: 
  Country: None (occurrence: None)
  Receive Date: 20110922
  Receipt Date: 20110413
  Transmission Date: 20111222
  Serious: Yes (Other)
  Sender: FDA-Public Use
  Company Number: US-ASTRAZENECA-2009UW10511

PATIENT
  Sex: Male

DRUGS (13)
  1. ZANTAC [Concomitant]
     Route: 048
     Dates: start: 20070131
  2. REQUIP [Concomitant]
     Route: 048
     Dates: start: 20071121
  3. PROTONIX [Concomitant]
     Route: 048
     Dates: start: 20071121
  4. LISINOPRIL [Concomitant]
     Route: 048
     Dates: start: 20071121
  5. SEROQUEL [Suspect]
     Indication: DEPRESSION
     Dosage: 50 MG TO 300 MG
     Route: 048
     Dates: start: 20070101
  6. SEROQUEL [Suspect]
     Route: 048
     Dates: start: 20070131
  7. SEROQUEL [Suspect]
     Route: 048
     Dates: start: 20070131
  8. ASPIRIN [Concomitant]
     Route: 048
     Dates: start: 20070131
  9. SEROQUEL [Suspect]
     Route: 048
     Dates: start: 20071121
  10. LEXAPRO [Concomitant]
     Route: 048
     Dates: start: 20070131
  11. SEROQUEL [Suspect]
     Indication: SLEEP DISORDER
     Dosage: 50 MG TO 300 MG
     Route: 048
     Dates: start: 20070101
  12. SEROQUEL [Suspect]
     Route: 048
     Dates: start: 20071121
  13. FORADIL [Concomitant]
     Dosage: 1 CAPSULE B I D
     Dates: start: 20071121

REACTIONS (2)
  - PANCREATITIS [None]
  - DIABETES MELLITUS [None]
